FAERS Safety Report 7872031-0 (Version None)
Quarter: 2011Q4

REPORT INFORMATION
  Report Type: 
  Country: None (occurrence: None)
  Receive Date: 20111014
  Receipt Date: 20100825
  Transmission Date: 20120403
  Serious: Yes (Other)
  Sender: FDA-Public Use
  Company Number: 1000015938

PATIENT
  Age: 57 Year
  Sex: Female

DRUGS (4)
  1. BACLOFEN [Concomitant]
  2. ASPIRIN [Concomitant]
  3. LEXAPRO [Suspect]
     Indication: DEPRESSION
     Dosage: 5 MG (5 MG, 1 IN 1 D), ORAL 10 MG (10 MG, 1 IN 1 D), ORAL
     Route: 048
     Dates: start: 20090201, end: 20100819
  4. LEXAPRO [Suspect]
     Indication: DEPRESSION
     Dosage: 5 MG (5 MG, 1 IN 1 D), ORAL 10 MG (10 MG, 1 IN 1 D), ORAL
     Route: 048
     Dates: start: 20100820

REACTIONS (5)
  - DEPRESSION [None]
  - MANIA [None]
  - DIZZINESS [None]
  - FATIGUE [None]
  - SUICIDAL IDEATION [None]
